FAERS Safety Report 9162886 (Version 3)
Quarter: 2013Q2

REPORT INFORMATION
  Report Type: Spontaneous
  Country: JP (occurrence: None)
  Receive Date: 20130227
  Receipt Date: 20130425
  Transmission Date: 20140414
  Serious: Yes (Other)
  Sender: FDA-Public Use
  Company Number: JP-20130007

PATIENT
  Age: 55 Year
  Sex: Female

DRUGS (2)
  1. LIPIODOL ULTRA FLUIDE (ETHIODIZED OIL) [Suspect]
     Indication: THERAPEUTIC EMBOLISATION
     Route: 013
     Dates: start: 20101021, end: 20101021
  2. N-BUTYL-2-CYANOACRYLATE [Suspect]
     Indication: THERAPEUTIC EMBOLISATION
     Route: 013

REACTIONS (4)
  - Gastric ulcer [None]
  - Condition aggravated [None]
  - Procedural complication [None]
  - Off label use [None]
